FAERS Safety Report 4795024-9 (Version None)
Quarter: 2005Q3

REPORT INFORMATION
  Report Type: 
  Country: None (occurrence: None)
  Receive Date: 20050919
  Receipt Date: 20050527
  Transmission Date: 20060218
  Serious: No
  Sender: FDA-Public Use
  Company Number: US-JNJFOC-20050600284

PATIENT
  Age: 38 Year
  Sex: Female
  Weight: 92.9874 kg

DRUGS (2)
  1. ORTHO TRI-CYCLEN LO [Suspect]
     Dosage: 1 DOSE(S), 1 IN 1 DAY, ORAL
     Route: 048
     Dates: start: 20050516
  2. AVALIDE (KARVEA HCT) [Concomitant]

REACTIONS (3)
  - ACNE [None]
  - OEDEMA PERIPHERAL [None]
  - WEIGHT INCREASED [None]
